FAERS Safety Report 23112167 (Version 1)
Quarter: 2023Q4

REPORT INFORMATION
  Report Type: Spontaneous
  Country: US (occurrence: US)
  Receive Date: 20231026
  Receipt Date: 20231026
  Transmission Date: 20240110
  Serious: Yes (Hospitalization)
  Sender: FDA-Public Use
  Company Number: US-ABBVIE-5466164

PATIENT
  Age: 30 Year
  Sex: Female

DRUGS (1)
  1. HUMIRA [Suspect]
     Active Substance: ADALIMUMAB
     Indication: Hidradenitis
     Dosage: FORM STRENGTH: 80 MG
     Route: 058

REACTIONS (4)
  - Hospitalisation [Unknown]
  - Injection site discharge [Recovered/Resolved]
  - Therapeutic procedure [Unknown]
  - Device issue [Unknown]

NARRATIVE: CASE EVENT DATE: 20231001
